FAERS Safety Report 8796314 (Version 2)
Quarter: 2012Q4

REPORT INFORMATION
  Report Type: 
  Country: US (occurrence: US)
  Receive Date: 20120919
  Receipt Date: 20121017
  Transmission Date: 20130627
  Serious: Yes (Other)
  Sender: FDA-Public Use
  Company Number: US-PFIZER INC-2012232019

PATIENT
  Age: 80 Year
  Sex: Female

DRUGS (1)
  1. CELEBREX [Suspect]
     Indication: OSTEOARTHRITIS
     Dosage: 200 mg, 1x/day for 6 days, 5 tablets
     Route: 048
     Dates: start: 20120912, end: 20120917

REACTIONS (1)
  - Erythema multiforme [Recovered/Resolved]
